FAERS Safety Report 4441762-7 (Version None)
Quarter: 2004Q3

REPORT INFORMATION
  Report Type: 
  Country: None (occurrence: None)
  Receive Date: 20040907
  Receipt Date: 20040830
  Transmission Date: 20050211
  Serious: Yes (Death, Hospitalization)
  Sender: FDA-Public Use
  Company Number: PHBS2004ES11529

PATIENT
  Age: 52 Year
  Sex: Male

DRUGS (2)
  1. CYCLOSPORINE [Suspect]
     Indication: RENAL TRANSPLANT
     Dosage: 80 MG, Q12H
     Route: 065
  2. PREDNISONE [Suspect]
     Indication: RENAL TRANSPLANT
     Dosage: 20 MG, Q48H
     Route: 065

REACTIONS (8)
  - ACUTE RESPIRATORY FAILURE [None]
  - BLOOD CREATININE INCREASED [None]
  - CHEST PAIN [None]
  - LIVER DISORDER [None]
  - NOCARDIOSIS [None]
  - PLEURAL EFFUSION [None]
  - PYREXIA [None]
  - RENAL IMPAIRMENT [None]
